FAERS Safety Report 24297974 (Version 1)
Quarter: 2024Q3

REPORT INFORMATION
  Report Type: Spontaneous
  Country: US (occurrence: None)
  Receive Date: 20240906
  Receipt Date: 20240906
  Transmission Date: 20241017
  Serious: Yes (Hospitalization)
  Sender: Public
  Company Number: None

PATIENT
  Age: 76 Year
  Sex: Male
  Weight: 112.5 kg

DRUGS (2)
  1. POSACONAZOLE [Suspect]
     Active Substance: POSACONAZOLE
     Indication: Myelodysplastic syndrome
     Dosage: 300 MG DAILY ORAL
     Route: 048
     Dates: start: 20240716
  2. INQOVI [Suspect]
     Active Substance: CEDAZURIDINE\DECITABINE

REACTIONS (1)
  - Cardiac failure [None]
